FAERS Safety Report 8221594-4 (Version None)
Quarter: 2012Q1

REPORT INFORMATION
  Report Type: 
  Country: None (occurrence: None)
  Receive Date: 20120320
  Receipt Date: 20120313
  Transmission Date: 20120608
  Serious: Yes (Hospitalization, Other)
  Sender: FDA-Public Use
  Company Number: DK-JNJFOC-20120208787

PATIENT
  Sex: Female
  Weight: 53 kg

DRUGS (10)
  1. NEUPOGEN [Suspect]
     Indication: DIFFUSE LARGE B-CELL LYMPHOMA
     Route: 058
     Dates: start: 20120126
  2. RITUXIMAB [Suspect]
     Indication: DIFFUSE LARGE B-CELL LYMPHOMA
     Route: 042
     Dates: start: 20120124
  3. VINCRISTINE [Suspect]
     Indication: DIFFUSE LARGE B-CELL LYMPHOMA
     Route: 042
     Dates: start: 20120124
  4. NEUPOGEN [Suspect]
     Route: 058
  5. RAMIPRIL [Concomitant]
     Route: 065
     Dates: end: 20120130
  6. DOXORUBICIN HCL [Suspect]
     Indication: DIFFUSE LARGE B-CELL LYMPHOMA
     Route: 042
     Dates: start: 20120124
  7. CYCLOPHOSPHAMIDE [Suspect]
     Indication: DIFFUSE LARGE B-CELL LYMPHOMA
     Route: 042
     Dates: start: 20120124
  8. PREDNISONE [Suspect]
     Indication: DIFFUSE LARGE B-CELL LYMPHOMA
     Route: 048
     Dates: start: 20120124
  9. SULFAMETHOXAZOL [Concomitant]
     Route: 048
     Dates: start: 20120119, end: 20120130
  10. VALACYCLOVIR HYDROCHLORIDE [Concomitant]
     Route: 048
     Dates: start: 20120119, end: 20120130

REACTIONS (4)
  - ATRIOVENTRICULAR BLOCK SECOND DEGREE [None]
  - VOMITING [None]
  - SYNCOPE [None]
  - ATRIOVENTRICULAR BLOCK COMPLETE [None]
